FAERS Safety Report 5793916-5 (Version None)
Quarter: 2008Q2

REPORT INFORMATION
  Report Type: 
  Country: None (occurrence: None)
  Receive Date: 20080627
  Receipt Date: 20080617
  Transmission Date: 20081010
  Serious: Yes (Other)
  Sender: FDA-Public Use
  Company Number: CH-PFIZER INC-2008046254

PATIENT
  Sex: Female
  Weight: 60 kg

DRUGS (8)
  1. XANAX [Suspect]
     Indication: ANXIETY
     Route: 048
  2. XANAX [Suspect]
     Indication: ANXIETY DISORDER
     Route: 048
  3. TRITTICO [Suspect]
     Indication: DEPRESSION
     Route: 048
  4. TRITTICO [Suspect]
     Indication: INSOMNIA
  5. SERTRALINE [Suspect]
     Indication: DEPRESSION
     Route: 048
     Dates: start: 20070101, end: 20080323
  6. SERTRALINE [Suspect]
     Indication: ANXIETY
  7. EFFEXOR [Suspect]
     Indication: DEPRESSION
     Route: 048
  8. EFFEXOR [Suspect]
     Indication: ANXIETY

REACTIONS (1)
  - ABORTION MISSED [None]
